FAERS Safety Report 13614210 (Version 2)
Quarter: 2017Q2

REPORT INFORMATION
  Report Type: Spontaneous
  Country: US (occurrence: US)
  Receive Date: 20170606
  Receipt Date: 20170608
  Transmission Date: 20170830
  Serious: Yes (Life-Threatening, Other)
  Sender: FDA-Public Use
  Company Number: PHEH2017US016835

PATIENT
  Age: 60 Year
  Sex: Male

DRUGS (1)
  1. ENTRESTO [Suspect]
     Active Substance: SACUBITRIL\VALSARTAN
     Indication: CARDIAC FAILURE CONGESTIVE
     Dosage: UNK
     Route: 065

REACTIONS (9)
  - Apparent death [Unknown]
  - Acute kidney injury [Unknown]
  - Angioedema [Unknown]
  - Rash [Unknown]
  - Renal impairment [Unknown]
  - Dyspnoea [Unknown]
  - Cardiac failure congestive [Unknown]
  - Hypersensitivity [Unknown]
  - Hiccups [Unknown]

NARRATIVE: CASE EVENT DATE: 20170521
